FAERS Safety Report 14584905 (Version 5)
Quarter: 2018Q4

REPORT INFORMATION
  Report Type: Other
  Country: NL (occurrence: NL)
  Receive Date: 20180301
  Receipt Date: 20181025
  Transmission Date: 20190204
  Serious: Yes (Congenital Anomaly, Other)
  Sender: FDA-Public Use
  Company Number: NL-ASPEN-GLO2017NL009390AA

PATIENT
  Sex: Female

DRUGS (3)
  1. DEXAMETHASONE. [Suspect]
     Active Substance: DEXAMETHASONE
     Indication: GENE MUTATION
     Dosage: 0.5 MG, TID
     Route: 064
  2. DEXAMETHASONE. [Suspect]
     Active Substance: DEXAMETHASONE
     Indication: VIRILISM
     Dosage: 25 MCG, QD
     Route: 064
  3. DEXAMETHASONE. [Suspect]
     Active Substance: DEXAMETHASONE
     Indication: ADRENOGENITAL SYNDROME

REACTIONS (8)
  - Cleft palate repair [Unknown]
  - Learning disability [Unknown]
  - Cognitive disorder [Unknown]
  - Memory impairment [Unknown]
  - Virilism [Recovering/Resolving]
  - Foetal exposure during pregnancy [Unknown]
  - Cleft lip and palate [Recovering/Resolving]
  - Adrenogenital syndrome [Recovering/Resolving]
